FAERS Safety Report 10740430 (Version 1)
Quarter: 2015Q1

REPORT INFORMATION
  Report Type: Report from Study
  Country: US (occurrence: US)
  Receive Date: 20150127
  Receipt Date: 20150127
  Transmission Date: 20150721
  Serious: Yes (Hospitalization)
  Sender: FDA-Public Use
  Company Number: US-ROCHE-1523566

PATIENT
  Age: 68 Year
  Sex: Female
  Weight: 64 kg

DRUGS (4)
  1. CARBOPLATIN. [Suspect]
     Active Substance: CARBOPLATIN
     Indication: OVARIAN EPITHELIAL CANCER
     Dosage: 6 IV OVER 30 MINS ON DAY 1
     Route: 042
     Dates: start: 20141124, end: 20141124
  2. PACLITAXEL. [Suspect]
     Active Substance: PACLITAXEL
     Indication: OVARIAN EPITHELIAL CANCER
     Dosage: OVER 3 HRS ON DAY 1 ?DATE OF LAST DOSE OF PACLITAXEL ADMINISTERED PRIOR TO EVENT
     Route: 042
     Dates: start: 20141124, end: 20141124
  3. BEVACIZUMAB [Suspect]
     Active Substance: BEVACIZUMAB
     Indication: OVARIAN EPITHELIAL CANCER
     Dosage: OVER 30-90 MINS ON DAY 1?DATE OF LAST DOSE OF BEVACIZUMAB ADMINISTERED PRIOR TO EVENT
     Route: 042
     Dates: start: 20141124, end: 20141124
  4. VELIPARIB [Suspect]
     Active Substance: VELIPARIB
     Indication: OVARIAN EPITHELIAL CANCER
     Dosage: BID ON DAYS 1-21.
     Route: 048
     Dates: start: 20141124, end: 20141215

REACTIONS (3)
  - Syncope [Unknown]
  - Hyponatraemia [Unknown]
  - Dizziness [Unknown]

NARRATIVE: CASE EVENT DATE: 20141211
